FAERS Safety Report 22643361 (Version 1)
Quarter: 2023Q2

REPORT INFORMATION
  Report Type: Spontaneous
  Country: DE (occurrence: DE)
  Receive Date: 20230627
  Receipt Date: 20230627
  Transmission Date: 20230721
  Serious: Yes (Other)
  Sender: FDA-Public Use
  Company Number: DE-ROCHE-2169389

PATIENT
  Age: 56 Year
  Sex: Female
  Weight: 56 kg

DRUGS (6)
  1. TRASTUZUMAB [Suspect]
     Active Substance: TRASTUZUMAB
     Indication: Breast cancer
     Dosage: 448 MILLIGRAM, CYCLICAL
     Route: 040
     Dates: start: 20180529
  2. TRASTUZUMAB [Suspect]
     Active Substance: TRASTUZUMAB
     Dosage: 336 MILLIGRAM, CYCLICAL
     Route: 040
     Dates: start: 20180619
  3. PERTUZUMAB [Suspect]
     Active Substance: PERTUZUMAB
     Indication: Breast cancer
     Dosage: 840 MILLIGRAM, CYCLICAL
     Route: 065
     Dates: start: 20180529
  4. PERTUZUMAB [Suspect]
     Active Substance: PERTUZUMAB
     Indication: Breast cancer
     Dosage: 420 MG, CYCLICAL
     Route: 065
     Dates: start: 20180619
  5. DOCETAXEL [Suspect]
     Active Substance: DOCETAXEL
     Indication: Breast cancer
     Dosage: 114 MILLIGRAM
     Route: 065
     Dates: start: 20180529
  6. DOCETAXEL [Suspect]
     Active Substance: DOCETAXEL
     Indication: Breast cancer
     Dosage: 152 MILLIGRAM
     Route: 065
     Dates: start: 20180619

REACTIONS (3)
  - Polyneuropathy [Not Recovered/Not Resolved]
  - Off label use [Unknown]
  - Fatigue [Recovered/Resolved]

NARRATIVE: CASE EVENT DATE: 20180529
